FAERS Safety Report 9162074 (Version 5)
Quarter: 2013Q1

REPORT INFORMATION
  Report Type: Spontaneous
  Country: US (occurrence: None)
  Receive Date: 20130118
  Receipt Date: 20130304
  Transmission Date: 20140127
  Serious: Yes (Other)
  Sender: FDA-Public Use
  Company Number: 2013034424

PATIENT
  Age: 68 Year
  Sex: Female

DRUGS (5)
  1. CARIMUNE NF [Suspect]
     Indication: HYPOGAMMAGLOBULINAEMIA
     Dosage: 1X/4 WEEKS
     Route: 042
  2. LOVASTATIN [Concomitant]
  3. FOLIC ACID [Concomitant]
  4. VITAMIN B12 (CYANOCOBALAMIN) [Concomitant]
  5. PRAVASTATIN (PRAVASTATIN) [Concomitant]

REACTIONS (7)
  - Hepatic failure [None]
  - Thirst [None]
  - Nausea [None]
  - Splenomegaly [None]
  - Platelet count decreased [None]
  - Varices oesophageal [None]
  - Hepatic cirrhosis [None]
